FAERS Safety Report 4604265-2 (Version None)
Quarter: 2005Q2

REPORT INFORMATION
  Report Type: 
  Country: None (occurrence: None)
  Receive Date: 20050214
  Receipt Date: 20041214
  Transmission Date: 20051028
  Serious: No
  Sender: FDA-Public Use
  Company Number: USA041286123

PATIENT
  Sex: Male

DRUGS (1)
  1. CIALIS [Suspect]
     Dosage: 20 MG DAY
     Dates: start: 20041214

REACTIONS (2)
  - ERECTION INCREASED [None]
  - SEMEN DISCOLOURATION [None]
